FAERS Safety Report 10297274 (Version 1)
Quarter: 2014Q3

REPORT INFORMATION
  Report Type: Spontaneous
  Country: US (occurrence: US)
  Receive Date: 20140711
  Receipt Date: 20140711
  Transmission Date: 20150326
  Serious: Yes (Hospitalization)
  Sender: FDA-Public Use
  Company Number: US-BRISTOL-MYERS SQUIBB COMPANY-21161237

PATIENT
  Age: 53 Year
  Sex: Male

DRUGS (9)
  1. ALKA SELTZER [Concomitant]
     Active Substance: ANHYDROUS CITRIC ACID\ASPIRIN\SODIUM BICARBONATE
  2. METFORMIN [Concomitant]
     Active Substance: METFORMIN HYDROCHLORIDE
  3. XARELTO [Concomitant]
     Active Substance: RIVAROXABAN
  4. AMIODARONE [Concomitant]
     Active Substance: AMIODARONE
  5. ALLEGRON [Concomitant]
  6. SPRYCEL [Suspect]
     Active Substance: DASATINIB
     Indication: CHRONIC MYELOID LEUKAEMIA
     Route: 048
     Dates: start: 20120915
  7. VOLTAREN [Concomitant]
     Active Substance: DICLOFENAC SODIUM
  8. METOPROLOL [Concomitant]
     Active Substance: METOPROLOL
  9. AMIODARONE [Concomitant]
     Active Substance: AMIODARONE

REACTIONS (1)
  - Cardiac disorder [Unknown]
